FAERS Safety Report 8463018-8 (Version None)
Quarter: 2012Q2

REPORT INFORMATION
  Report Type: 
  Country: None (occurrence: None)
  Receive Date: 20120625
  Receipt Date: 20120620
  Transmission Date: 20120825
  Serious: Yes (Hospitalization)
  Sender: FDA-Public Use
  Company Number: IT-GLAXOSMITHKLINE-Z0015480A

PATIENT
  Sex: Female
  Weight: 62 kg

DRUGS (4)
  1. SUNITINIB MALATE [Suspect]
     Indication: RENAL CELL CARCINOMA
     Dosage: 50MG PER DAY
     Route: 048
     Dates: start: 20100703, end: 20101009
  2. PAZOPANIB [Suspect]
     Indication: RENAL CELL CARCINOMA
     Dosage: 800MG PER DAY
     Route: 048
     Dates: start: 20101022, end: 20101227
  3. PAZOPANIB [Suspect]
     Dosage: 800MG PER DAY
     Route: 048
     Dates: start: 20101228
  4. BLOOD TRANSFUSION [Concomitant]
     Indication: ANAEMIA
     Dosage: 1 PER DAY
     Route: 042
     Dates: start: 20120618, end: 20120618

REACTIONS (1)
  - ANAEMIA [None]
